FAERS Safety Report 15886738 (Version 1)
Quarter: 2019Q1

REPORT INFORMATION
  Report Type: Spontaneous
  Country: US (occurrence: US)
  Receive Date: 20190129
  Receipt Date: 20190129
  Transmission Date: 20190417
  Serious: Yes (Other)
  Sender: FDA-Public Use
  Company Number: US-BIOGEN-2019BI00688679

PATIENT
  Sex: Female

DRUGS (1)
  1. AVONEX [Suspect]
     Active Substance: INTERFERON BETA-1A
     Indication: MULTIPLE SCLEROSIS
     Route: 065
     Dates: start: 20031001

REACTIONS (6)
  - Emotional distress [Unknown]
  - Stress [Unknown]
  - Breast cancer [Unknown]
  - Emotional disorder [Unknown]
  - Nuclear magnetic resonance imaging abnormal [Unknown]
  - Depression [Unknown]
